FAERS Safety Report 7832898-9 (Version None)
Quarter: 2011Q4

REPORT INFORMATION
  Report Type: 
  Country: None (occurrence: None)
  Receive Date: 20111019
  Receipt Date: 20111005
  Transmission Date: 20120403
  Serious: Yes (Other)
  Sender: FDA-Public Use
  Company Number: 2011SP047097

PATIENT

DRUGS (1)
  1. PEG-INTRON [Suspect]
     Indication: PRODUCT USED FOR UNKNOWN INDICATION
     Dosage: SC
     Route: 058
     Dates: start: 20110101

REACTIONS (4)
  - NERVOUS SYSTEM DISORDER [None]
  - MOVEMENT DISORDER [None]
  - CONDITION AGGRAVATED [None]
  - MALAISE [None]
